FAERS Safety Report 10232923 (Version 1)
Quarter: 2014Q2

REPORT INFORMATION
  Report Type: Report from Study
  Country: US (occurrence: US)
  Receive Date: 20140612
  Receipt Date: 20140612
  Transmission Date: 20141212
  Serious: Yes (Hospitalization)
  Sender: FDA-Public Use
  Company Number: US-PURDUE-USA-2014-0114719

PATIENT
  Sex: Female

DRUGS (1)
  1. OXY CR TAB [Suspect]
     Indication: PRODUCT USED FOR UNKNOWN INDICATION
     Dosage: 40 MG, Q8H
     Route: 048
     Dates: start: 201309

REACTIONS (1)
  - Investigation [Unknown]
